FAERS Safety Report 10263086 (Version 2)
Quarter: 2014Q2

REPORT INFORMATION
  Report Type: Report from Study
  Country: US (occurrence: US)
  Receive Date: 20140626
  Receipt Date: 20140626
  Transmission Date: 20141212
  Serious: Yes (Death)
  Sender: FDA-Public Use
  Company Number: US-MYLANLABS-2014S1000795

PATIENT
  Age: 52 Year
  Sex: Male

DRUGS (16)
  1. CLOZAPINE TABLETS [Suspect]
     Indication: PSYCHOTIC DISORDER
     Route: 048
     Dates: start: 20080617
  2. CLOZAPINE TABLETS [Suspect]
     Indication: PSYCHOTIC DISORDER
     Route: 048
     Dates: start: 20080617
  3. BENZTROPINE [Concomitant]
     Dosage: 8A,4P,8P
  4. VESICARE [Concomitant]
     Route: 048
  5. LIPITOR [Concomitant]
     Route: 048
  6. LAMISIL [Concomitant]
     Route: 048
  7. LORAZEPAM [Concomitant]
     Dosage: 0.5MG Q4PM, 1MG QHS
     Route: 048
  8. MULTIVITAMIN [Concomitant]
  9. ERYTHROMYCIN [Concomitant]
     Route: 061
  10. TAMSULOSIN [Concomitant]
  11. MIRALAX /00754501/ [Concomitant]
     Indication: CONSTIPATION
  12. DOCUSATE [Concomitant]
     Indication: CONSTIPATION
  13. PRILOSEC [Concomitant]
  14. B1 [Concomitant]
  15. VITAMIN C [Concomitant]
     Indication: VITAMIN B1 DECREASED
     Dosage: 8A,8P
  16. VITAMIN E [Concomitant]
     Indication: VITAMIN B1 DECREASED
     Dosage: 8A,8P

REACTIONS (1)
  - Myocardial infarction [Fatal]
